FAERS Safety Report 10238180 (Version 1)
Quarter: 2014Q2

REPORT INFORMATION
  Report Type: Spontaneous
  Country: US (occurrence: None)
  Receive Date: 20140613
  Receipt Date: 20140613
  Transmission Date: 20141212
  Serious: Yes (Hospitalization)
  Sender: FDA-Public Use
  Company Number: None

PATIENT
  Age: 73 Year
  Sex: Male
  Weight: 78.6 kg

DRUGS (1)
  1. DECITABINE [Suspect]
     Route: 042
     Dates: start: 20140321, end: 20140330

REACTIONS (2)
  - Pancytopenia [None]
  - Atrial fibrillation [None]
